FAERS Safety Report 5567444-6 (Version None)
Quarter: 2007Q4

REPORT INFORMATION
  Report Type: 
  Country: None (occurrence: None)
  Receive Date: 20071214
  Receipt Date: 20071129
  Transmission Date: 20080405
  Serious: Yes (Hospitalization, Other)
  Sender: FDA-Public Use
  Company Number: MEDI-0006124

PATIENT
  Age: 10 Month
  Sex: Female
  Weight: 7.8 kg

DRUGS (6)
  1. SYNAGIS [Suspect]
     Indication: ANTIVIRAL PROPHYLAXIS
     Dosage: 15 MG/KG, INTRAMUSCULAR
     Route: 030
     Dates: start: 20071116, end: 20071116
  2. DOMPERIDONE (DOMPERIDONE) [Concomitant]
  3. RANITIDINE [Concomitant]
  4. ABIDEC (ERGOCALCIFEROL, ASCORBIC ACID, THIAMINE HYDROCHLORIDE, RETINOL [Concomitant]
  5. FOLIC ACID [Concomitant]
  6. SYTRON (SODIUM FEREDETATE) [Concomitant]

REACTIONS (2)
  - LOWER RESPIRATORY TRACT INFECTION [None]
  - RESPIRATORY SYNCYTIAL VIRUS BRONCHIOLITIS [None]
